FAERS Safety Report 9013252 (Version 1)
Quarter: 2013Q1

REPORT INFORMATION
  Report Type: Spontaneous
  Country: US (occurrence: None)
  Receive Date: 20130107
  Receipt Date: 20130107
  Transmission Date: 20140127
  Serious: Yes (Disabling)
  Sender: FDA-Public Use
  Company Number: None

PATIENT
  Age: 16 Year
  Sex: Female
  Weight: 58.97 kg

DRUGS (5)
  1. LEXAPRO [Suspect]
     Indication: HEADACHE
     Route: 048
     Dates: start: 20120910, end: 20120930
  2. LEXAPRO [Suspect]
     Indication: ANXIETY
     Route: 048
     Dates: start: 20120910, end: 20120930
  3. MEDROL [Concomitant]
  4. KENALOG [Concomitant]
  5. CYMBALTA [Concomitant]

REACTIONS (29)
  - Chills [None]
  - Dizziness [None]
  - Tremor [None]
  - Akathisia [None]
  - Disinhibition [None]
  - Memory impairment [None]
  - Disturbance in attention [None]
  - Headache [None]
  - Mydriasis [None]
  - Pain in extremity [None]
  - Back pain [None]
  - Arthralgia [None]
  - Pain in extremity [None]
  - Hypoaesthesia [None]
  - Irritability [None]
  - Hyperaesthesia [None]
  - Photophobia [None]
  - Hyperacusis [None]
  - Blood pressure increased [None]
  - Hyperhidrosis [None]
  - Pollakiuria [None]
  - Breast tenderness [None]
  - Breast disorder [None]
  - Dyspepsia [None]
  - Eructation [None]
  - Decreased appetite [None]
  - Diarrhoea [None]
  - Anxiety [None]
  - Panic attack [None]
